FAERS Safety Report 9303263 (Version 1)
Quarter: 2013Q2

REPORT INFORMATION
  Report Type: Spontaneous
  Country: US (occurrence: US)
  Receive Date: 20130522
  Receipt Date: 20130522
  Transmission Date: 20140414
  Serious: Yes (Other)
  Sender: FDA-Public Use
  Company Number: US-PFIZER INC-2013155946

PATIENT
  Sex: Female

DRUGS (3)
  1. VENLAFAXINE ER [Suspect]
     Indication: PANIC DISORDER
     Dosage: 75 MG, 1X/DAY
  2. VENLAFAXINE ER [Suspect]
     Indication: ANXIETY
     Dosage: 37.5 MG, UNK
  3. VENLAFAXINE ER [Suspect]
     Dosage: 37.5 MG, ALTERNATE DAY

REACTIONS (8)
  - Suicidal behaviour [Unknown]
  - Drug withdrawal syndrome [Unknown]
  - Hypertension [Unknown]
  - Hyperhidrosis [Unknown]
  - Bruxism [Unknown]
  - Headache [Unknown]
  - Tinnitus [Unknown]
  - Drug effect decreased [Unknown]
